FAERS Safety Report 25271204 (Version 1)
Quarter: 2025Q2

REPORT INFORMATION
  Report Type: Spontaneous
  Country: KR (occurrence: None)
  Receive Date: 20250506
  Receipt Date: 20250506
  Transmission Date: 20250717
  Serious: Yes (Hospitalization, Other)
  Sender: NATCO PHARMA
  Company Number: KR-NATCOUSA-2025-NATCOUSA-000296

PATIENT
  Age: 46 Year
  Sex: Female
  Weight: 80 kg

DRUGS (4)
  1. TOPIRAMATE [Suspect]
     Active Substance: TOPIRAMATE
     Indication: Obesity
  2. FLUOXETINE [Suspect]
     Active Substance: FLUOXETINE HYDROCHLORIDE
     Indication: Depression
     Dosage: DAILY
     Route: 065
  3. PHENTERMINE [Suspect]
     Active Substance: PHENTERMINE
     Indication: Obesity
     Dosage: 1 MONTH, DAILY
     Route: 065
  4. CHLORTHALIDONE [Suspect]
     Active Substance: CHLORTHALIDONE
     Indication: Obesity
     Dosage: 1 MONTH, DAILY
     Route: 065

REACTIONS (7)
  - Drug interaction [Unknown]
  - Serotonin syndrome [Unknown]
  - Rhabdomyolysis [Unknown]
  - Respiratory failure [Unknown]
  - Pulmonary embolism [Unknown]
  - Stress cardiomyopathy [Unknown]
  - Off label use [Unknown]
